FAERS Safety Report 8597788-5 (Version None)
Quarter: 2012Q3

REPORT INFORMATION
  Report Type: 
  Country: None (occurrence: None)
  Receive Date: 20120816
  Receipt Date: 20120813
  Transmission Date: 20120928
  Serious: Yes (Other)
  Sender: FDA-Public Use
  Company Number: PHEH2012US015832

PATIENT
  Sex: Male

DRUGS (1)
  1. CARBAMAZEPINE [Suspect]

REACTIONS (4)
  - ANAPHYLACTIC SHOCK [None]
  - DYSPHAGIA [None]
  - SWELLING [None]
  - DYSPNOEA [None]
